FAERS Safety Report 12710393 (Version 2)
Quarter: 2016Q4

REPORT INFORMATION
  Report Type: Spontaneous
  Country: IE (occurrence: IE)
  Receive Date: 20160902
  Receipt Date: 20161012
  Transmission Date: 20170207
  Serious: Yes (Death)
  Sender: FDA-Public Use
  Company Number: IE-PFIZER INC-2016412350

PATIENT
  Age: 56 Year
  Sex: Female

DRUGS (3)
  1. SPIRULINA /01514001/ [Concomitant]
     Active Substance: SPIRULINA
  2. SUTENT [Suspect]
     Active Substance: SUNITINIB MALATE
     Indication: METASTATIC RENAL CELL CARCINOMA
     Dosage: 25 MG, CONTINUOUS
     Dates: start: 20130308, end: 20130403
  3. DEXAMETHASONE. [Concomitant]
     Active Substance: DEXAMETHASONE
     Dosage: 4 MG, UNK

REACTIONS (1)
  - Death [Fatal]
